FAERS Safety Report 23436405 (Version 1)
Quarter: 2024Q1

REPORT INFORMATION
  Report Type: Spontaneous
  Country: PL (occurrence: PL)
  Receive Date: 20240124
  Receipt Date: 20240124
  Transmission Date: 20240409
  Serious: Yes (Other)
  Sender: FDA-Public Use
  Company Number: None

PATIENT
  Age: 41 Year
  Sex: Female
  Weight: 78 kg

DRUGS (4)
  1. MESNA [Suspect]
     Active Substance: MESNA
     Indication: Soft tissue sarcoma
     Dosage: DOSE: 1275 DOSE UNIT UNKNOWN, EVERY 8 HOURS
     Route: 042
     Dates: start: 20191122, end: 20191124
  2. IFOSFAMIDE [Suspect]
     Active Substance: IFOSFAMIDE
     Indication: Soft tissue sarcoma
     Dosage: 2 G/M2, EVERY 24 HOURS
     Route: 042
     Dates: start: 20191122, end: 20191124
  3. ONDANSETRON [Concomitant]
     Active Substance: ONDANSETRON
     Indication: Soft tissue sarcoma
     Dosage: 8 MG, EVERY 12 HOURS
     Route: 042
     Dates: start: 20191122, end: 20191124
  4. FENTANYL [Concomitant]
     Active Substance: FENTANYL\FENTANYL CITRATE
     Indication: Soft tissue sarcoma
     Dosage: 75UG/H
     Route: 062
     Dates: start: 20191122, end: 20191124

REACTIONS (3)
  - Respiratory acidosis [Recovering/Resolving]
  - Psychomotor hyperactivity [Recovering/Resolving]
  - Aggression [Recovering/Resolving]

NARRATIVE: CASE EVENT DATE: 20191124
